FAERS Safety Report 6196120-4 (Version None)
Quarter: 2009Q2

REPORT INFORMATION
  Report Type: 
  Country: None (occurrence: None)
  Receive Date: 20090520
  Receipt Date: 20090512
  Transmission Date: 20091009
  Serious: Yes (Hospitalization, Other)
  Sender: FDA-Public Use
  Company Number: US-PFIZER INC-2009211277

PATIENT
  Sex: Male
  Weight: 52.608 kg

DRUGS (1)
  1. SUTENT [Suspect]
     Indication: NON-SMALL CELL LUNG CANCER
     Dosage: 37.5 MG, 1X/DAY
     Route: 048
     Dates: start: 20090316

REACTIONS (7)
  - ANOREXIA [None]
  - CHRONIC OBSTRUCTIVE PULMONARY DISEASE [None]
  - DIARRHOEA [None]
  - FATIGUE [None]
  - FLUID INTAKE REDUCED [None]
  - JAUNDICE [None]
  - SOMNOLENCE [None]
